FAERS Safety Report 10359389 (Version 1)
Quarter: 2014Q3

REPORT INFORMATION
  Report Type: Spontaneous
  Country: US (occurrence: US)
  Receive Date: 20140804
  Receipt Date: 20140804
  Transmission Date: 20150326
  Serious: Yes (Other)
  Sender: FDA-Public Use
  Company Number: US-JNJFOC-20140716148

PATIENT

DRUGS (5)
  1. DOXORUBICIN HYDROCHLORIDE. [Suspect]
     Active Substance: DOXORUBICIN HYDROCHLORIDE
     Indication: BLADDER CANCER
     Route: 042
  2. METHOTREXATE [Suspect]
     Active Substance: METHOTREXATE
     Indication: BLADDER CANCER
     Route: 065
  3. VINBLASTINE [Suspect]
     Active Substance: VINBLASTINE
     Indication: BLADDER CANCER
     Dosage: ON DAY 1
     Route: 065
  4. GRANULOCYTE COLONY-STIMULATING FACTOR (GCSF) [Suspect]
     Active Substance: GRANULOCYTE COLONY-STIMULATING FACTOR NOS
     Indication: BLADDER CANCER
     Dosage: ON DAY 2 (PEGYLATED)
     Route: 065
  5. CISPLATIN. [Suspect]
     Active Substance: CISPLATIN
     Indication: BLADDER CANCER
     Route: 065

REACTIONS (5)
  - Fatigue [Unknown]
  - Toxicity to various agents [None]
  - Anaemia [Unknown]
  - Hypomagnesaemia [Unknown]
  - Off label use [Unknown]
